FAERS Safety Report 7513677-9 (Version None)
Quarter: 2011Q2

REPORT INFORMATION
  Report Type: 
  Country: None (occurrence: None)
  Receive Date: 20110531
  Receipt Date: 20110519
  Transmission Date: 20111010
  Serious: Yes (Hospitalization, Other)
  Sender: FDA-Public Use
  Company Number: US-ASTRAZENECA-2011SE31258

PATIENT
  Age: 85 Year
  Sex: Male

DRUGS (3)
  1. PLAVIX [Concomitant]
  2. NEXIUM [Suspect]
     Route: 048
  3. CRESTOR [Suspect]
     Route: 048

REACTIONS (4)
  - URINARY BLADDER POLYP [None]
  - PROSTATIC OPERATION [None]
  - CARDIAC OPERATION [None]
  - ANAESTHETIC COMPLICATION [None]
